FAERS Safety Report 8616665-4 (Version None)
Quarter: 2012Q3

REPORT INFORMATION
  Report Type: 
  Country: None (occurrence: None)
  Receive Date: 20120823
  Receipt Date: 20120817
  Transmission Date: 20120928
  Serious: Yes (Hospitalization, Other)
  Sender: FDA-Public Use
  Company Number: US-009507513-1207USA006149

PATIENT

DRUGS (4)
  1. INVANZ [Suspect]
     Indication: SKIN ULCER
  2. INVANZ [Suspect]
     Indication: CELLULITIS
     Dosage: 500 MG, QD
     Route: 042
     Dates: start: 20120625, end: 20120702
  3. GLIPIZIDE [Concomitant]
     Route: 048
  4. METFORMIN HCL [Concomitant]
     Route: 048

REACTIONS (6)
  - LOSS OF CONSCIOUSNESS [None]
  - DYSARTHRIA [None]
  - MENTAL STATUS CHANGES [None]
  - DRUG HYPERSENSITIVITY [None]
  - VOMITING [None]
  - NAUSEA [None]
